FAERS Safety Report 6713664-4 (Version None)
Quarter: 2010Q2

REPORT INFORMATION
  Report Type: 
  Country: None (occurrence: None)
  Receive Date: 20100506
  Receipt Date: 20100426
  Transmission Date: 20101027
  Serious: Yes (Hospitalization)
  Sender: FDA-Public Use
  Company Number: Z0004015A

PATIENT
  Sex: Male
  Weight: 76 kg

DRUGS (3)
  1. OFATUMUMAB [Suspect]
     Route: 042
     Dates: start: 20091130
  2. CHLORAMBUCIL [Suspect]
     Route: 048
     Dates: start: 20091130
  3. LEVOTHYROXINE SODIUM [Concomitant]
     Dosage: 50MG UNKNOWN
     Route: 048

REACTIONS (1)
  - DYSPNOEA [None]
